FAERS Safety Report 6256209-8 (Version None)
Quarter: 2009Q3

REPORT INFORMATION
  Report Type: 
  Country: None (occurrence: None)
  Receive Date: 20090706
  Receipt Date: 20090629
  Transmission Date: 20100115
  Serious: Yes (Death, Other)
  Sender: FDA-Public Use
  Company Number: PHHY2009BR24194

PATIENT
  Sex: Female

DRUGS (3)
  1. FORASEQ [Suspect]
     Indication: EMPHYSEMA
     Dosage: 12/400 MCG, 2 TIMES/DAY
  2. BECLOMETASONE [Concomitant]
  3. ATROVENT [Concomitant]

REACTIONS (3)
  - ARRHYTHMIA [None]
  - EMPHYSEMA [None]
  - RESPIRATORY FAILURE [None]
